FAERS Safety Report 14227561 (Version 1)
Quarter: 2017Q4

REPORT INFORMATION
  Report Type: Spontaneous
  Country: CH (occurrence: CH)
  Receive Date: 20171127
  Receipt Date: 20171127
  Transmission Date: 20180321
  Serious: Yes (Hospitalization)
  Sender: FDA-Public Use
  Company Number: CH-SA-2017SA234142

PATIENT
  Age: 40 Year
  Sex: Male
  Weight: 96 kg

DRUGS (7)
  1. STILNOX [Suspect]
     Active Substance: ZOLPIDEM TARTRATE
     Route: 048
     Dates: start: 20171031, end: 20171031
  2. STILNOX [Suspect]
     Active Substance: ZOLPIDEM TARTRATE
     Route: 048
  3. XANAX [Concomitant]
     Active Substance: ALPRAZOLAM
     Indication: ANXIETY
     Dosage: MAXIMUM 2XDAY
     Route: 048
     Dates: end: 20171031
  4. CONCOR [Concomitant]
     Active Substance: BISOPROLOL FUMARATE
     Route: 048
  5. SINTROM [Suspect]
     Active Substance: ACENOCOUMAROL
     Route: 048
  6. SINTROM [Suspect]
     Active Substance: ACENOCOUMAROL
     Route: 048
     Dates: start: 20171031, end: 20171031
  7. SERTRALINE [Concomitant]
     Active Substance: SERTRALINE HYDROCHLORIDE
     Route: 048

REACTIONS (5)
  - Craniocerebral injury [Recovered/Resolved]
  - International normalised ratio increased [Recovered/Resolved]
  - Intentional overdose [Unknown]
  - Fall [Recovered/Resolved]
  - Altered state of consciousness [Recovered/Resolved]

NARRATIVE: CASE EVENT DATE: 20171031
